FAERS Safety Report 19812584 (Version 2)
Quarter: 2022Q4

REPORT INFORMATION
  Report Type: Spontaneous
  Country: US (occurrence: US)
  Receive Date: 20210910
  Receipt Date: 20221012
  Transmission Date: 20230112
  Serious: No
  Sender: FDA-Public Use
  Company Number: US-CELLTRION INC.-2017US017772

PATIENT

DRUGS (4)
  1. INFLECTRA [Suspect]
     Active Substance: INFLIXIMAB-DYYB
     Indication: Gastrointestinal inflammation
     Dosage: 600 MG, 6 VIALS AT 0,2,6 AND THEN EVERY 8 WEEKS
     Route: 065
  2. INFLECTRA [Suspect]
     Active Substance: INFLIXIMAB-DYYB
     Indication: Colitis
     Dosage: 6 VIALS PER TREATMENT/ 6 VIALS PER INFUSION
     Route: 065
     Dates: start: 20171121, end: 20171121
  3. INFLECTRA [Suspect]
     Active Substance: INFLIXIMAB-DYYB
     Indication: Crohn^s disease
     Dosage: 600 MG
     Route: 065
     Dates: start: 20180319, end: 20180319
  4. INFLECTRA [Suspect]
     Active Substance: INFLIXIMAB-DYYB
     Dosage: UNK
     Route: 065
     Dates: start: 20180622, end: 20180622

REACTIONS (2)
  - Off label use [Unknown]
  - Off label use [Unknown]
